FAERS Safety Report 5370639-8 (Version None)
Quarter: 2007Q2

REPORT INFORMATION
  Report Type: 
  Country: None (occurrence: None)
  Receive Date: 20070622
  Receipt Date: 20070612
  Transmission Date: 20071010
  Serious: Yes (Other)
  Sender: FDA-Public Use
  Company Number: 2007US001402

PATIENT
  Age: 11 Month
  Sex: Male

DRUGS (2)
  1. PROGRAF [Suspect]
     Indication: GRAFT VERSUS HOST DISEASE
     Dosage: 0.15 MG/K, UID/QD, ORAL
     Route: 048
  2. PROTOPIC [Suspect]
     Indication: ACUTE GRAFT VERSUS HOST DISEASE IN SKIN
     Dosage: 0.1%, BID, TOPICAL
     Route: 061

REACTIONS (3)
  - DRUG EFFECT DECREASED [None]
  - DRUG LEVEL INCREASED [None]
  - DRUG TOXICITY [None]
